FAERS Safety Report 4985898-0 (Version None)
Quarter: 2006Q2

REPORT INFORMATION
  Report Type: 
  Country: None (occurrence: None)
  Receive Date: 20060421
  Receipt Date: 20060412
  Transmission Date: 20061013
  Serious: Yes (Disabling)
  Sender: FDA-Public Use
  Company Number: 200610535GDS

PATIENT
  Age: 71 Year
  Sex: Male

DRUGS (4)
  1. CIPROFLOXACIN [Suspect]
     Indication: URINARY TRACT INFECTION
     Dosage: 250 MG, BID, ORAL
     Route: 048
     Dates: start: 20000121
  2. FLOMAX [Suspect]
     Indication: BENIGN PROSTATIC HYPERPLASIA
     Dosage: 0.4 MG, TOTAL DAILY
     Dates: start: 20000121
  3. HYDROCHLOROTHIAZIDE [Concomitant]
  4. VERAPAMIL [Concomitant]

REACTIONS (7)
  - DYSPHAGIA [None]
  - OEDEMA PERIPHERAL [None]
  - PERIORBITAL OEDEMA [None]
  - PHARYNGEAL OEDEMA [None]
  - PRURITUS [None]
  - PYREXIA [None]
  - RASH [None]
